FAERS Safety Report 6775811-8 (Version None)
Quarter: 2010Q2

REPORT INFORMATION
  Report Type: 
  Country: None (occurrence: None)
  Receive Date: 20100617
  Receipt Date: 20100608
  Transmission Date: 20101027
  Serious: Yes (Life-Threatening, Hospitalization)
  Sender: FDA-Public Use
  Company Number: EG-GENENTECH-302779

PATIENT
  Age: 64 Year
  Sex: Male

DRUGS (1)
  1. MABTHERA [Suspect]
     Indication: NON-HODGKIN'S LYMPHOMA
     Dosage: 375 MG/M2, 1/WEEK
     Route: 050
     Dates: start: 20100512, end: 20100529

REACTIONS (3)
  - ATRIAL FIBRILLATION [None]
  - DIABETES MELLITUS INADEQUATE CONTROL [None]
  - HEPATITIS FULMINANT [None]
